FAERS Safety Report 20308009 (Version 1)
Quarter: 2022Q1

REPORT INFORMATION
  Report Type: Spontaneous
  Country: US (occurrence: US)
  Receive Date: 20220107
  Receipt Date: 20220107
  Transmission Date: 20220423
  Serious: No
  Sender: FDA-Public Use
  Company Number: US-ALLERGAN-2140676US

PATIENT
  Age: 52 Year
  Sex: Female

DRUGS (4)
  1. QULIPTA [Suspect]
     Active Substance: ATOGEPANT
     Indication: Migraine
     Dosage: UNK
     Dates: start: 20211116
  2. STOOL SOFTENER (DOCUSATE) [Concomitant]
     Active Substance: DOCUSATE
     Indication: Constipation
     Dosage: 3 TO 4 TIMES A DAY
  3. STOOL SOFTENER (DOCUSATE) [Concomitant]
     Active Substance: DOCUSATE
     Dosage: 1 PILL ONCE A DAY
  4. ENEMA [SODIUM CHLORIDE] [Concomitant]
     Indication: Constipation
     Dosage: UNK
     Route: 065
     Dates: start: 20211118, end: 20211119

REACTIONS (2)
  - Therapy interrupted [Unknown]
  - Constipation [Recovered/Resolved]

NARRATIVE: CASE EVENT DATE: 20211117
